FAERS Safety Report 5917691-6 (Version None)
Quarter: 2008Q4

REPORT INFORMATION
  Report Type: 
  Country: None (occurrence: None)
  Receive Date: 20081009
  Receipt Date: 20080930
  Transmission Date: 20090506
  Serious: Yes (Other)
  Sender: FDA-Public Use
  Company Number: GXKR2008FR09387

PATIENT
  Age: 41 Year
  Sex: Male

DRUGS (3)
  1. AZATHIOPRINE [Suspect]
     Indication: CROHN'S DISEASE
     Dosage: 2 MG/KG/DAY, UNKNOWN
  2. RIBAVIRIN [Suspect]
     Indication: HEPATITIS C
     Dosage: 1.2 G/DAY, UNKNOWN
  3. PEGINTERFERON ALFA-2B(PEGINTERFERON ALFA-2B) UNKNOWN [Suspect]
     Indication: HEPATITIS C
     Dosage: 1.5 UG/KG/WEEK. UNKNOWN

REACTIONS (3)
  - BONE MARROW FAILURE [None]
  - DRUG INTERACTION [None]
  - PANCYTOPENIA [None]
